FAERS Safety Report 5612276-3 (Version None)
Quarter: 2008Q1

REPORT INFORMATION
  Report Type: 
  Country: None (occurrence: None)
  Receive Date: 20080128
  Receipt Date: 20080122
  Transmission Date: 20080703
  Serious: Yes (Life-Threatening, Hospitalization)
  Sender: FDA-Public Use
  Company Number: 2008SP001695

PATIENT
  Age: 4 Year
  Sex: Male
  Weight: 15.4 kg

DRUGS (4)
  1. BETAMETHASONE [Suspect]
     Indication: RHINORRHOEA
     Dosage: 170 GTT;QD;PO
     Route: 048
     Dates: start: 20071218, end: 20071220
  2. ADVIL [Suspect]
     Indication: RHINORRHOEA
     Dosage: 100 MG;TID;PO
     Route: 048
     Dates: start: 20071215, end: 20071220
  3. PNEUMOREL (FENSPIRIDE HYDROCHLORIDE) [Suspect]
     Indication: RHINORRHOEA
     Dosage: PO
     Route: 048
     Dates: start: 20071218, end: 20071220
  4. ACETAMINOPHEN [Concomitant]

REACTIONS (8)
  - CARDIAC MURMUR [None]
  - GASTRIC ULCER [None]
  - GASTROINTESTINAL HAEMORRHAGE [None]
  - HAEMORRHAGIC ANAEMIA [None]
  - HEART RATE INCREASED [None]
  - PYREXIA [None]
  - THIRST [None]
  - VOMITING [None]
